FAERS Safety Report 5131587-1 (Version None)
Quarter: 2006Q4

REPORT INFORMATION
  Report Type: 
  Country: None (occurrence: None)
  Receive Date: 20061020
  Receipt Date: 20061005
  Transmission Date: 20070319
  Serious: Yes (Death, Hospitalization)
  Sender: FDA-Public Use
  Company Number: PHBS2006JP15486

PATIENT
  Age: 70 Year
  Sex: Female
  Weight: 50 kg

DRUGS (6)
  1. ZOMETA [Suspect]
     Indication: BONE LESION
     Dosage: 4 MG/DAY
     Route: 042
     Dates: start: 20060523, end: 20060905
  2. TAXOTERE [Suspect]
     Indication: BREAST CANCER
     Dosage: 80 MG/D
     Route: 042
     Dates: start: 20060214, end: 20060801
  3. ARIMIDEX [Concomitant]
     Indication: BREAST CANCER
     Dosage: 1 MG/D
     Route: 048
     Dates: start: 20050207, end: 20060912
  4. LOXONIN [Concomitant]
     Indication: BONE LESION
     Dosage: 3 DF/D
     Route: 048
  5. NASEA [Concomitant]
     Indication: VOMITING
     Dosage: 1 DF/D
     Route: 042
     Dates: start: 20060214, end: 20060801
  6. DECADRON [Concomitant]
     Indication: VOMITING
     Dosage: 12 MG/D
     Route: 042
     Dates: start: 20060214, end: 20060801

REACTIONS (26)
  - ABDOMINAL PAIN [None]
  - ALANINE AMINOTRANSFERASE INCREASED [None]
  - ASPARTATE AMINOTRANSFERASE INCREASED [None]
  - BLOOD BILIRUBIN INCREASED [None]
  - BLOOD BILIRUBIN UNCONJUGATED INCREASED [None]
  - BLOOD CREATININE INCREASED [None]
  - BLOOD GLUCOSE INCREASED [None]
  - BLOOD LACTATE DEHYDROGENASE INCREASED [None]
  - BLOOD PRESSURE INCREASED [None]
  - BLOOD UREA INCREASED [None]
  - CARDIAC ARREST [None]
  - DEPRESSED LEVEL OF CONSCIOUSNESS [None]
  - DIZZINESS [None]
  - DRY MOUTH [None]
  - DYSSTASIA [None]
  - GAMMA-GLUTAMYLTRANSFERASE INCREASED [None]
  - GENERAL PHYSICAL HEALTH DETERIORATION [None]
  - HEPATIC FAILURE [None]
  - JAUNDICE [None]
  - MALIGNANT NEOPLASM PROGRESSION [None]
  - PROTHROMBIN TIME SHORTENED [None]
  - RESPIRATORY DISORDER [None]
  - RESUSCITATION [None]
  - SPEECH DISORDER [None]
  - TUMOUR MARKER INCREASED [None]
  - WHITE BLOOD CELL COUNT INCREASED [None]
